FAERS Safety Report 8179907-8 (Version None)
Quarter: 2012Q1

REPORT INFORMATION
  Report Type: 
  Country: None (occurrence: None)
  Receive Date: 20120302
  Receipt Date: 20120222
  Transmission Date: 20120608
  Serious: Yes (Other)
  Sender: FDA-Public Use
  Company Number: JP-JNJFOC-20120300153

PATIENT
  Age: 73 Year
  Sex: Male

DRUGS (9)
  1. LEVOFLOXACIN [Suspect]
     Indication: LEUKOPENIA
     Route: 048
  2. PEMETREXED [Concomitant]
     Route: 065
  3. CEFCAPENE PIVOXIL [Suspect]
     Indication: LEUKOPENIA
     Route: 065
  4. CEFCAPENE PIVOXIL [Suspect]
     Indication: INFECTION
     Route: 065
  5. LEVOFLOXACIN [Suspect]
     Indication: INFECTION
     Route: 048
  6. LEVOFLOXACIN [Suspect]
     Indication: PYREXIA
     Route: 048
  7. GLIMEPIRIDE [Concomitant]
     Route: 065
  8. CEFCAPENE PIVOXIL [Suspect]
     Indication: PYREXIA
     Route: 065
  9. CHEMOTHERAPY [Concomitant]
     Route: 065

REACTIONS (3)
  - LOSS OF CONSCIOUSNESS [None]
  - CONVULSION [None]
  - HYPOGLYCAEMIA [None]
